FAERS Safety Report 9532223 (Version 1)
Quarter: 2013Q3

REPORT INFORMATION
  Report Type: Spontaneous
  Country: US (occurrence: US)
  Receive Date: 20130918
  Receipt Date: 20130918
  Transmission Date: 20140515
  Serious: Yes (Other)
  Sender: FDA-Public Use
  Company Number: US-BAUSCH-BL-2013-004998

PATIENT
  Age: 42 Year
  Sex: Female

DRUGS (2)
  1. DEXAMETHASONE [Suspect]
     Indication: CATARACT
     Dosage: DROP; SIX TIMES A DAY; RIGHT EYE
     Route: 047
  2. DEXAMETHASONE [Suspect]
     Dosage: DROP; SIX TIMES A DAY; RIGHT EYE
     Route: 047

REACTIONS (7)
  - Off label use [Recovered/Resolved]
  - Cushing^s syndrome [Recovered/Resolved]
  - Central obesity [Recovered/Resolved]
  - Myopathy [Recovered/Resolved]
  - Ecchymosis [Recovered/Resolved]
  - Skin striae [Recovered/Resolved]
  - Glucose tolerance impaired [Recovered/Resolved]
